FAERS Safety Report 10658329 (Version 1)
Quarter: 2014Q4

REPORT INFORMATION
  Report Type: Spontaneous
  Country: CH (occurrence: CH)
  Receive Date: 20141217
  Receipt Date: 20141217
  Transmission Date: 20150529
  Serious: Yes (Other)
  Sender: FDA-Public Use
  Company Number: CH-AMGEN-CHESP2014097130

PATIENT
  Age: 73 Year
  Sex: Female

DRUGS (8)
  1. METO ZEROK [Concomitant]
     Active Substance: METOPROLOL SUCCINATE
     Dosage: UNK
  2. VI DE3 [Concomitant]
     Dosage: UNK
  3. ENATEC [Concomitant]
     Active Substance: ENALAPRIL MALEATE
     Dosage: UNK
  4. PROLIA [Suspect]
     Active Substance: DENOSUMAB
     Indication: OSTEOPOROSIS POSTMENOPAUSAL
     Dosage: 60 MG, Q6MO
     Route: 058
     Dates: start: 20120101
  5. LIBRAX [Concomitant]
     Active Substance: CHLORDIAZEPOXIDE HYDROCHLORIDE\CLIDINIUM BROMIDE
     Dosage: UNK
  6. SORTIS [Concomitant]
     Active Substance: ATORVASTATIN
     Dosage: UNK
  7. CALCIUM CARBONATE. [Concomitant]
     Active Substance: CALCIUM CARBONATE
     Dosage: UNK
  8. MARCUMAR [Concomitant]
     Active Substance: PHENPROCOUMON
     Dosage: UNK

REACTIONS (2)
  - Prurigo [Recovering/Resolving]
  - Rash [Recovered/Resolved]

NARRATIVE: CASE EVENT DATE: 20140601
